FAERS Safety Report 16314519 (Version 1)
Quarter: 2019Q2

REPORT INFORMATION
  Report Type: Spontaneous
  Country: US (occurrence: US)
  Receive Date: 20190515
  Receipt Date: 20190515
  Transmission Date: 20190711
  Serious: No
  Sender: FDA-Public Use
  Company Number: US-BAYER-2019-091521

PATIENT
  Age: 91 Year
  Sex: Female
  Weight: 65 kg

DRUGS (1)
  1. MIRALAX [Suspect]
     Active Substance: POLYETHYLENE GLYCOL 3350
     Indication: GASTROINTESTINAL DISORDER
     Dosage: 2 DF, QD
     Route: 048
     Dates: start: 20190501

REACTIONS (2)
  - Extra dose administered [None]
  - Therapeutic product effect delayed [Unknown]

NARRATIVE: CASE EVENT DATE: 201905
